FAERS Safety Report 5583418-3 (Version None)
Quarter: 2008Q1

REPORT INFORMATION
  Report Type: 
  Country: None (occurrence: None)
  Receive Date: 20080107
  Receipt Date: 20071228
  Transmission Date: 20080703
  Serious: Yes (Hospitalization)
  Sender: FDA-Public Use
  Company Number: JP-ABBOTT-07P-087-0425121-00

PATIENT
  Sex: Female
  Weight: 51.2 kg

DRUGS (31)
  1. CEFZON [Suspect]
     Indication: DRUG USE FOR UNKNOWN INDICATION
     Route: 048
     Dates: start: 20071109, end: 20071110
  2. CEFZON [Suspect]
     Route: 048
     Dates: start: 20071030, end: 20071108
  3. CARBAMAZEPINE [Suspect]
     Indication: DRUG USE FOR UNKNOWN INDICATION
     Route: 048
     Dates: start: 20071030, end: 20071108
  4. CARBAMAZEPINE [Suspect]
     Route: 048
     Dates: start: 20071109, end: 20071109
  5. CARBAMAZEPINE [Suspect]
     Route: 048
     Dates: start: 20071110, end: 20071111
  6. MAGNESIUM OXIDE [Concomitant]
     Indication: DRUG USE FOR UNKNOWN INDICATION
     Route: 048
     Dates: start: 20071123
  7. OXYCODONE HYDROCHLORIDE [Concomitant]
     Indication: DRUG USE FOR UNKNOWN INDICATION
     Route: 048
     Dates: start: 20071022
  8. TRAVELMIN [Concomitant]
     Indication: DRUG USE FOR UNKNOWN INDICATION
     Dates: start: 20071030
  9. PROCHLORPERAZINE [Concomitant]
     Indication: DRUG USE FOR UNKNOWN INDICATION
     Route: 048
     Dates: start: 20071023
  10. CANDESARTAN CILEXETIL [Concomitant]
     Indication: DRUG USE FOR UNKNOWN INDICATION
     Route: 048
  11. VITAMEDIN [Concomitant]
     Indication: DRUG USE FOR UNKNOWN INDICATION
  12. LOXOPROFEN [Concomitant]
     Indication: DRUG USE FOR UNKNOWN INDICATION
     Route: 048
     Dates: start: 20071122
  13. REBAMIPIDE [Concomitant]
     Indication: DRUG USE FOR UNKNOWN INDICATION
     Route: 048
     Dates: start: 20071022
  14. AMLODIPINE [Concomitant]
     Indication: DRUG USE FOR UNKNOWN INDICATION
     Route: 048
  15. CARBOPLATIN [Concomitant]
     Indication: DRUG USE FOR UNKNOWN INDICATION
     Route: 050
     Dates: start: 20071025, end: 20071116
  16. PACLITAXEL [Concomitant]
     Indication: DRUG USE FOR UNKNOWN INDICATION
     Route: 050
     Dates: start: 20071025, end: 20071116
  17. BROTIZOLAM [Concomitant]
     Indication: DRUG USE FOR UNKNOWN INDICATION
     Dates: start: 20071030, end: 20071030
  18. ORGOTEIN [Concomitant]
     Indication: DRUG USE FOR UNKNOWN INDICATION
     Dates: start: 20071022, end: 20071109
  19. CROTAMITON [Concomitant]
     Indication: DRUG USE FOR UNKNOWN INDICATION
     Dates: start: 20071111, end: 20071111
  20. NERIPROCT [Concomitant]
     Indication: DRUG USE FOR UNKNOWN INDICATION
     Dates: start: 20071026, end: 20071026
  21. STREPTOCOCCUS FAECALIS [Concomitant]
     Indication: DRUG USE FOR UNKNOWN INDICATION
     Dates: start: 20071101, end: 20071104
  22. VEEN D [Concomitant]
     Indication: DRUG USE FOR UNKNOWN INDICATION
     Dates: start: 20071030
  23. GRANISETRON [Concomitant]
     Indication: DRUG USE FOR UNKNOWN INDICATION
     Dates: start: 20071025, end: 20071116
  24. FILGRASTIM [Concomitant]
     Indication: DRUG USE FOR UNKNOWN INDICATION
     Dates: start: 20071102, end: 20071104
  25. CHLORPHENIRAMINE MALEATE [Concomitant]
     Indication: DRUG USE FOR UNKNOWN INDICATION
     Dates: start: 20071112, end: 20071112
  26. RANITIDINE HYDROCHLORIDE [Concomitant]
     Indication: DRUG USE FOR UNKNOWN INDICATION
     Dates: start: 20071025, end: 20071116
  27. SOLITA-T1 [Concomitant]
     Indication: DRUG USE FOR UNKNOWN INDICATION
     Dates: start: 20071129, end: 20071129
  28. DEXAMETHASONE SODIUM PHOSPHATE [Concomitant]
     Indication: DRUG USE FOR UNKNOWN INDICATION
     Dates: start: 20071025, end: 20071116
  29. THIAMINE DISULFIDE [Concomitant]
     Indication: DRUG USE FOR UNKNOWN INDICATION
     Dates: start: 20071030, end: 20071104
  30. SODIUM CHLORIDE INJ [Concomitant]
     Indication: DRUG USE FOR UNKNOWN INDICATION
     Dates: start: 20071025, end: 20071116
  31. SODIUM CHLORIDE INJ [Concomitant]
     Route: 050
     Dates: start: 20071112, end: 20071112

REACTIONS (2)
  - PLATELET COUNT DECREASED [None]
  - PURPURA [None]
